FAERS Safety Report 13319902 (Version 1)
Quarter: 2017Q1

REPORT INFORMATION
  Report Type: Spontaneous
  Country: US (occurrence: US)
  Receive Date: 20170310
  Receipt Date: 20170310
  Transmission Date: 20170428
  Serious: Yes (Hospitalization)
  Sender: FDA-Public Use
  Company Number: US-PERRIGO-17US002037

PATIENT
  Age: 83 Year
  Sex: Male

DRUGS (1)
  1. LOPERAMIDE HYDROCHLORIDE. [Suspect]
     Active Substance: LOPERAMIDE HYDROCHLORIDE
     Indication: WEIGHT GAIN POOR
     Dosage: 400 MG, QD
     Route: 048
     Dates: start: 20150419

REACTIONS (3)
  - Cardiotoxicity [Recovered/Resolved]
  - Intentional product misuse [Unknown]
  - Electrocardiogram abnormal [Recovered/Resolved]

NARRATIVE: CASE EVENT DATE: 201504
